FAERS Safety Report 4430491-1 (Version None)
Quarter: 2004Q3

REPORT INFORMATION
  Report Type: 
  Country: None (occurrence: None)
  Receive Date: 20040721
  Receipt Date: 20030815
  Transmission Date: 20050211
  Serious: Yes (Hospitalization, Other)
  Sender: FDA-Public Use
  Company Number: WAE0312USA02038

PATIENT
  Sex: Female

DRUGS (1)
  1. VIOXX [Suspect]
     Dosage: 50 MG/DAILY/PO
     Route: 048
     Dates: start: 20030601, end: 20030601

REACTIONS (1)
  - RENAL FAILURE [None]
